FAERS Safety Report 8515707-4 (Version None)
Quarter: 2012Q3

REPORT INFORMATION
  Report Type: 
  Country: None (occurrence: None)
  Receive Date: 20120717
  Receipt Date: 20120712
  Transmission Date: 20120928
  Serious: Yes (Other)
  Sender: FDA-Public Use
  Company Number: PHHY2012JP051308

PATIENT
  Sex: Male
  Weight: 39 kg

DRUGS (7)
  1. EXELON [Suspect]
     Indication: DEMENTIA ALZHEIMER'S TYPE
     Dosage: 4.5 MG, QD
     Route: 062
     Dates: start: 20120507
  2. ALFAROL [Concomitant]
     Dosage: 1 G, UNK
     Dates: start: 20101105
  3. EXELON [Suspect]
     Dosage: 9 MG, QD
     Route: 062
     Dates: start: 20120604, end: 20120614
  4. LAC B [Concomitant]
     Dosage: 3 G, UNK
     Route: 048
     Dates: start: 20100927
  5. LIORESAL [Concomitant]
     Dosage: 5 MG, UNK
     Route: 048
     Dates: start: 20100927
  6. POTASSIUM GLUCONATE TAB [Concomitant]
     Dosage: 1.2 G, UNK
     Route: 048
     Dates: start: 20101016
  7. MENEST [Concomitant]
     Dosage: 200 MG, UNK
     Route: 048
     Dates: start: 20100927

REACTIONS (5)
  - INFECTION [None]
  - APPLICATION SITE RASH [None]
  - APPLICATION SITE DISCOLOURATION [None]
  - APPLICATION SITE ERYTHEMA [None]
  - PYREXIA [None]
